FAERS Safety Report 4732864-6 (Version None)
Quarter: 2005Q3

REPORT INFORMATION
  Report Type: 
  Country: None (occurrence: None)
  Receive Date: 20050803
  Receipt Date: 20050412
  Transmission Date: 20060218
  Serious: No
  Sender: FDA-Public Use
  Company Number: US-GLAXOSMITHKLINE-A0553797A

PATIENT
  Age: 51 Year
  Sex: Female

DRUGS (2)
  1. AVANDAMET [Suspect]
     Route: 048
     Dates: end: 20050412
  2. AVANDIA [Suspect]
     Dosage: 4MG PER DAY
     Route: 048

REACTIONS (4)
  - ABDOMINAL PAIN UPPER [None]
  - FUNGAL INFECTION [None]
  - PRURITUS [None]
  - RASH [None]
